FAERS Safety Report 6161307-3 (Version None)
Quarter: 2009Q2

REPORT INFORMATION
  Report Type: 
  Country: None (occurrence: None)
  Receive Date: 20090421
  Receipt Date: 20090414
  Transmission Date: 20091009
  Serious: Yes (Other)
  Sender: FDA-Public Use
  Company Number: IT-NOVOPROD-278163

PATIENT
  Sex: Female
  Weight: 60 kg

DRUGS (2)
  1. NOVOLOG [Suspect]
     Indication: DIABETES MELLITUS
     Dates: start: 20060101
  2. NOVOLOG [Suspect]

REACTIONS (4)
  - BRONCHOPNEUMONIA [None]
  - DEVICE FAILURE [None]
  - HYPERGLYCAEMIA [None]
  - PREGNANCY [None]
